FAERS Safety Report 9868132 (Version 1)
Quarter: 2014Q1

REPORT INFORMATION
  Report Type: Spontaneous
  Country: GB (occurrence: GB)
  Receive Date: 20140204
  Receipt Date: 20140204
  Transmission Date: 20141002
  Serious: Yes (Other)
  Sender: FDA-Public Use
  Company Number: GB-009507513-1401GBR014592

PATIENT
  Age: 27 Year
  Sex: Female

DRUGS (1)
  1. ETONOGESTREL IMPLANT- UNKNOWN [Suspect]
     Dosage: UNK
     Route: 059
     Dates: start: 201306

REACTIONS (2)
  - Cholecystectomy [Unknown]
  - Menorrhagia [Not Recovered/Not Resolved]
